FAERS Safety Report 17837231 (Version 2)
Quarter: 2020Q2

REPORT INFORMATION
  Report Type: Spontaneous
  Country: HU (occurrence: HU)
  Receive Date: 20200528
  Receipt Date: 20200622
  Transmission Date: 20200714
  Serious: Yes (Hospitalization)
  Sender: FDA-Public Use
  Company Number: NVSC2020HU147169

PATIENT
  Age: 1 Year
  Sex: Female

DRUGS (2)
  1. MONTELUKAST [Suspect]
     Active Substance: MONTELUKAST SODIUM
     Indication: DYSPNOEA
     Dosage: UNK, BID (IN THE MORNING AND EVENING)
     Route: 065
  2. FLIXOTIDE [Concomitant]
     Active Substance: FLUTICASONE PROPIONATE
     Indication: PRODUCT USED FOR UNKNOWN INDICATION
     Dosage: UNK, BID (SPRAY, IN THE MORNING AND EVENING)
     Route: 065

REACTIONS (7)
  - Malaise [Unknown]
  - Rhinorrhoea [Unknown]
  - Ill-defined disorder [Unknown]
  - Decreased bronchial secretion [Unknown]
  - Dyspnoea [Unknown]
  - Sneezing [Unknown]
  - Product use in unapproved indication [Unknown]
